FAERS Safety Report 10217878 (Version 1)
Quarter: 2014Q2

REPORT INFORMATION
  Report Type: Report from Study
  Country: GB (occurrence: GB)
  Receive Date: 20140605
  Receipt Date: 20140605
  Transmission Date: 20141212
  Serious: Yes (Hospitalization)
  Sender: FDA-Public Use
  Company Number: GB-AMGEN-GBRCT2014041494

PATIENT
  Age: 57 Year
  Sex: Male
  Weight: 75 kg

DRUGS (7)
  1. ETANERCEPT [Suspect]
     Indication: PRODUCT USED FOR UNKNOWN INDICATION
     Dosage: 50 MG, QWK
     Route: 065
     Dates: start: 20121031
  2. FOLIC ACID [Concomitant]
     Dosage: UNK
     Dates: start: 20130810
  3. METHOTREXATE [Concomitant]
     Dosage: UNK
     Dates: start: 20130808
  4. CELECOXIB [Concomitant]
     Dosage: UNK
     Dates: start: 20110701
  5. ETODOLAC [Concomitant]
     Dosage: UNK
     Dates: start: 20121018
  6. OMEPRAZOLE [Concomitant]
     Dosage: UNK
     Dates: start: 20111128
  7. CO-CODAMOL [Concomitant]
     Dosage: UNK
     Dates: start: 20121115

REACTIONS (1)
  - Anaphylactic reaction [Recovered/Resolved with Sequelae]
